FAERS Safety Report 9739234 (Version 1)
Quarter: 2013Q4

REPORT INFORMATION
  Report Type: Spontaneous
  Country: US (occurrence: US)
  Receive Date: 20131209
  Receipt Date: 20131209
  Transmission Date: 20140711
  Serious: Yes (Hospitalization)
  Sender: FDA-Public Use
  Company Number: US-ROXANE LABORATORIES, INC.-2013-RO-01907RO

PATIENT
  Age: 71 Year
  Sex: Female

DRUGS (3)
  1. DIGOXIN [Suspect]
     Indication: ATRIAL FIBRILLATION
  2. CIPROFLOXACIN [Suspect]
     Indication: URINARY TRACT INFECTION
  3. METOPROLOL [Concomitant]
     Indication: HYPERTENSION

REACTIONS (3)
  - Clostridium difficile colitis [Recovered/Resolved]
  - Dehydration [Recovered/Resolved]
  - Toxicity to various agents [Recovered/Resolved]
